FAERS Safety Report 9081018 (Version 1)
Quarter: 2013Q1

REPORT INFORMATION
  Report Type: Report from Study
  Country: US (occurrence: US)
  Receive Date: 20130130
  Receipt Date: 20130130
  Transmission Date: 20140127
  Serious: No
  Sender: FDA-Public Use
  Company Number: US-ABBOTT-12P-163-0961916-00

PATIENT
  Age: 70 Year
  Sex: Female

DRUGS (13)
  1. HUMIRA 40 MG/0.8 ML PEN [Suspect]
     Indication: CROHN^S DISEASE
     Dates: start: 20120515
  2. METOPROLOL [Concomitant]
     Indication: BLOOD PRESSURE
  3. ZOLOFT [Concomitant]
     Indication: ANXIETY
  4. ZOLOFT [Concomitant]
     Indication: DEPRESSION
  5. POTASSIUM [Concomitant]
     Indication: PRODUCT USED FOR UNKNOWN INDICATION
  6. VITAMIN D [Concomitant]
     Indication: PRODUCT USED FOR UNKNOWN INDICATION
  7. HYOMAX [Concomitant]
     Indication: ABDOMINAL PAIN UPPER
  8. HYDROCODONE [Concomitant]
     Indication: PAIN
  9. LOSARTAN POTASSIUM [Concomitant]
     Indication: BLOOD PRESSURE
  10. CHLORTHALIDONE [Concomitant]
     Indication: BLOOD PRESSURE
  11. PANTOPRAZOLE [Concomitant]
     Indication: GASTRITIS
  12. SUCRALFATE [Concomitant]
     Indication: GASTRITIS
  13. PREDNISONE [Concomitant]
     Indication: PRODUCT USED FOR UNKNOWN INDICATION

REACTIONS (4)
  - Malaise [Not Recovered/Not Resolved]
  - Pyrexia [Not Recovered/Not Resolved]
  - Dizziness [Not Recovered/Not Resolved]
  - Diarrhoea [Not Recovered/Not Resolved]
